FAERS Safety Report 19539159 (Version 1)
Quarter: 2021Q3

REPORT INFORMATION
  Report Type: Spontaneous
  Country: US (occurrence: US)
  Receive Date: 20210714
  Receipt Date: 20210714
  Transmission Date: 20211014
  Serious: Yes (Death)
  Sender: FDA-Public Use
  Company Number: None

PATIENT
  Age: 37 Year
  Sex: Female
  Weight: 101 kg

DRUGS (1)
  1. CASIRIVIMAB/IMDEVIMAB [Suspect]
     Active Substance: CASIRIVIMAB\IMDEVIMAB
     Indication: COVID-19
     Dosage: ?          OTHER FREQUENCY:ONCE;?
     Route: 042
     Dates: start: 20210630, end: 20210630

REACTIONS (5)
  - Hypoxia [None]
  - Pneumonia [None]
  - Bacteraemia [None]
  - COVID-19 [None]
  - Klebsiella infection [None]

NARRATIVE: CASE EVENT DATE: 20210713
